FAERS Safety Report 4457013-3 (Version None)
Quarter: 2004Q3

REPORT INFORMATION
  Report Type: 
  Country: None (occurrence: None)
  Receive Date: 20040923
  Receipt Date: 20040824
  Transmission Date: 20050211
  Serious: Yes (Disabling)
  Sender: FDA-Public Use
  Company Number: JP-GLAXOSMITHKLINE-B0343700A

PATIENT
  Age: 72 Year
  Sex: Female
  Weight: 52 kg

DRUGS (9)
  1. PAXIL [Suspect]
     Indication: PANIC DISORDER
     Dosage: 40MG PER DAY
     Route: 048
     Dates: start: 20040620
  2. EVISTA [Suspect]
     Indication: OSTEOPOROSIS
     Dosage: 60MG PER DAY
     Route: 048
     Dates: start: 20040528, end: 20040630
  3. SOLANAX [Concomitant]
     Indication: PANIC DISORDER
     Dosage: 2.4MG PER DAY
     Route: 048
     Dates: start: 20010612
  4. MEILAX [Concomitant]
     Indication: PANIC DISORDER
     Dosage: 1MG PER DAY
     Route: 048
     Dates: start: 20040528
  5. OMEPRAZEN [Concomitant]
     Indication: REFLUX OESOPHAGITIS
     Dosage: 20MG PER DAY
     Route: 048
     Dates: start: 20021205
  6. LUVOX [Concomitant]
     Indication: PANIC DISORDER
     Dosage: 300MG PER DAY
     Route: 048
  7. CYANOCOBALAMIN [Concomitant]
     Indication: TINNITUS
     Dosage: 1MG PER DAY
     Route: 048
     Dates: start: 20021205
  8. AMOBAN [Concomitant]
     Indication: INSOMNIA
     Dosage: 7.5MG PER DAY
     Route: 048
     Dates: start: 20040611
  9. DESYREL [Concomitant]
     Indication: INSOMNIA
     Dosage: 25MG PER DAY
     Route: 048
     Dates: start: 20040611

REACTIONS (9)
  - ARTHROPATHY [None]
  - ASTHENIA [None]
  - DIZZINESS [None]
  - DRUG INEFFECTIVE [None]
  - DRUG INTERACTION [None]
  - FALL [None]
  - FEELING ABNORMAL [None]
  - GAIT DISTURBANCE [None]
  - WOUND [None]
